FAERS Safety Report 9571375 (Version 1)
Quarter: 2013Q1

REPORT INFORMATION
  Report Type: Spontaneous
  Country: US (occurrence: None)
  Receive Date: 20120507
  Receipt Date: 20120507
  Transmission Date: 20140127
  Serious: Yes (Death)
  Sender: FDA-Public Use
  Company Number: 2007000940

PATIENT
  Age: 69 Year
  Sex: Male

DRUGS (1)
  1. TARCEVA (ERLOTINIB) (TABLET) (ERLOTINIB) [Suspect]
     Route: 048

REACTIONS (1)
  - Malignant neoplasm progression [None]
